FAERS Safety Report 24815145 (Version 1)
Quarter: 2025Q1

REPORT INFORMATION
  Report Type: Spontaneous
  Country: US (occurrence: None)
  Receive Date: 20250107
  Receipt Date: 20250107
  Transmission Date: 20250409
  Serious: Yes (Hospitalization)
  Sender: FDA-CTU
  Company Number: None

PATIENT
  Age: 65 Year
  Sex: Male

DRUGS (1)
  1. AVONEX [Suspect]
     Active Substance: INTERFERON BETA-1A
     Indication: Multiple sclerosis
     Dosage: OTHER STRENGTH : 30/0.5 UG/M;?FREQUENCY : WEEKLY;?
     Route: 030
     Dates: start: 201509

REACTIONS (2)
  - Multiple sclerosis relapse [None]
  - Gait inability [None]

NARRATIVE: CASE EVENT DATE: 20241212
